FAERS Safety Report 19241337 (Version 1)
Quarter: 2021Q2

REPORT INFORMATION
  Report Type: Spontaneous
  Country: US (occurrence: US)
  Receive Date: 20210511
  Receipt Date: 20210511
  Transmission Date: 20210717
  Serious: No
  Sender: FDA-Public Use
  Company Number: US-FAGRON STERILE SERVICES-2110416

PATIENT
  Age: 12 Year
  Sex: Male
  Weight: 36.5 kg

DRUGS (1)
  1. ROCURONIUM BROMIDE INJ. 10MG/ML (API) 5ML [Suspect]
     Active Substance: ROCURONIUM BROMIDE
     Dates: start: 20210428, end: 20210428

REACTIONS (1)
  - Drug ineffective [None]
